FAERS Safety Report 7880344-1 (Version None)
Quarter: 2011Q4

REPORT INFORMATION
  Report Type: 
  Country: None (occurrence: None)
  Receive Date: 20111101
  Receipt Date: 20111030
  Transmission Date: 20120403
  Serious: Yes (Other)
  Sender: FDA-Public Use
  Company Number: DE-PFIZER INC-2011254681

PATIENT
  Sex: Female

DRUGS (2)
  1. VENLAFAXINE HCL [Suspect]
     Indication: DEPRESSION
     Dosage: 225 MG, UNK
     Dates: end: 20111019
  2. VENLAFAXINE HCL [Suspect]
     Dosage: DOSE REDUCTION AT FIRST BY 1/4, THEN 1/2 ETC.
     Dates: start: 20111020, end: 20111001

REACTIONS (5)
  - URINARY INCONTINENCE [None]
  - DRUG WITHDRAWAL SYNDROME [None]
  - DEPRESSION [None]
  - PARAESTHESIA [None]
  - PAIN IN JAW [None]
